FAERS Safety Report 8218712-0 (Version None)
Quarter: 2012Q1

REPORT INFORMATION
  Report Type: 
  Country: None (occurrence: None)
  Receive Date: 20120319
  Receipt Date: 20120310
  Transmission Date: 20120608
  Serious: Yes (Other)
  Sender: FDA-Public Use
  Company Number: PHHY2012MX020998

PATIENT
  Sex: Female

DRUGS (1)
  1. ZOLEDRONOC ACID [Suspect]
     Indication: OSTEOPOROSIS
     Dosage: 1 APPLICATION (5 MG/100 ML) EACH YEAR
     Route: 042
     Dates: start: 20120306

REACTIONS (15)
  - FEELING ABNORMAL [None]
  - BACK PAIN [None]
  - MALAISE [None]
  - FATIGUE [None]
  - PYREXIA [None]
  - BONE PAIN [None]
  - APHAGIA [None]
  - CHEST PAIN [None]
  - URTICARIA [None]
  - RASH [None]
  - HEADACHE [None]
  - FOOD INTOLERANCE [None]
  - PAIN [None]
  - PERIPHERAL COLDNESS [None]
  - SYNCOPE [None]
